FAERS Safety Report 5929518-7 (Version None)
Quarter: 2008Q4

REPORT INFORMATION
  Report Type: 
  Country: None (occurrence: None)
  Receive Date: 20081024
  Receipt Date: 20081023
  Transmission Date: 20090506
  Serious: Yes (Hospitalization)
  Sender: FDA-Public Use
  Company Number: B0427821B

PATIENT
  Age: 63 Year
  Sex: Male
  Weight: 106 kg

DRUGS (8)
  1. ROSIGLITAZONE [Suspect]
     Dosage: 4MG PER DAY
     Route: 048
     Dates: start: 20011217
  2. GLUCOPHAGE [Concomitant]
     Dosage: 2550MG PER DAY
     Route: 048
     Dates: start: 20010301
  3. METFORMIN HCL [Concomitant]
  4. METOPROLOL TARTRATE [Concomitant]
  5. SIMVASTATIN [Concomitant]
  6. ENALAPRIL MALEATE [Concomitant]
  7. EUGLUCON [Concomitant]
  8. WARFARIN SODIUM [Concomitant]

REACTIONS (4)
  - ATRIAL FIBRILLATION [None]
  - CHEST DISCOMFORT [None]
  - CHEST PAIN [None]
  - PAIN IN EXTREMITY [None]
